FAERS Safety Report 9770966 (Version 2)
Quarter: 2013Q4

REPORT INFORMATION
  Report Type: Spontaneous
  Country: FR (occurrence: FR)
  Receive Date: 20131218
  Receipt Date: 20131218
  Transmission Date: 20140711
  Serious: Yes (Other)
  Sender: FDA-Public Use
  Company Number: ALCN2013FR000786

PATIENT
  Age: 48 Year
  Sex: Female
  Weight: 60 kg

DRUGS (2)
  1. AZOPT [Suspect]
     Indication: GLAUCOMA
     Dosage: 1 GTT, BID
     Route: 047
     Dates: start: 2012
  2. PULMICORT [Concomitant]
     Indication: ASTHMA
     Dosage: UNK, BID
     Route: 055

REACTIONS (3)
  - Shock [Recovered/Resolved]
  - Hypothermia [Recovered/Resolved]
  - Skin reaction [Recovered/Resolved]
